FAERS Safety Report 23075266 (Version 1)
Quarter: 2023Q4

REPORT INFORMATION
  Report Type: Spontaneous
  Country: US (occurrence: US)
  Receive Date: 20231017
  Receipt Date: 20231017
  Transmission Date: 20240110
  Serious: Yes (Death, Other)
  Sender: FDA-Public Use
  Company Number: US-AMGEN-USASP2023181913

PATIENT
  Age: 23 Year
  Sex: Female

DRUGS (3)
  1. RITUXIMAB [Suspect]
     Active Substance: RITUXIMAB
     Indication: Pulmonary haemorrhage
     Dosage: UNK
     Route: 065
  2. Immunoglobulin [Concomitant]
  3. MYCOPHENOLIC ACID [Concomitant]
     Active Substance: MYCOPHENOLIC ACID

REACTIONS (4)
  - Death [Fatal]
  - Haemoptysis [Unknown]
  - Hypotension [Unknown]
  - Off label use [Unknown]
